FAERS Safety Report 9098174 (Version 6)
Quarter: 2013Q3

REPORT INFORMATION
  Report Type: Spontaneous
  Country: US (occurrence: US)
  Receive Date: 20130213
  Receipt Date: 20130719
  Transmission Date: 20140515
  Serious: Yes (Death, Other)
  Sender: FDA-Public Use
  Company Number: US-INCYTE CORPORATION-2013IN000021

PATIENT
  Age: 85 Year
  Sex: Male
  Weight: 77.1 kg

DRUGS (7)
  1. JAKAFI [Suspect]
     Indication: MYELOFIBROSIS
     Dosage: 5 MG, QOD
     Route: 048
     Dates: start: 20120305, end: 20120427
  2. JAKAFI [Suspect]
     Dosage: 5 MG, QD
     Route: 048
     Dates: start: 20121214, end: 20121224
  3. OMEPRAZOLE [Concomitant]
     Dosage: 40 MG, BID
     Route: 048
  4. EXJADE [Concomitant]
     Indication: IRON OVERLOAD
     Dosage: 500 MG, QD
     Route: 048
     Dates: start: 20110727, end: 20120427
  5. CARAFATE [Concomitant]
     Dosage: 1 G, TID
     Route: 048
  6. FUROSEMIDE [Concomitant]
     Dosage: 40 MG, AS DIRECTED
     Route: 048
  7. TESTOSTERONE [Concomitant]
     Dosage: UNK
     Dates: start: 20120419, end: 20130128

REACTIONS (3)
  - Myelodysplastic syndrome [Fatal]
  - Thrombocytopenia [Unknown]
  - Haemoglobin decreased [Unknown]
